FAERS Safety Report 4331011-2 (Version None)
Quarter: 2004Q1

REPORT INFORMATION
  Report Type: 
  Country: None (occurrence: None)
  Receive Date: 20040331
  Receipt Date: 20040317
  Transmission Date: 20041129
  Serious: Yes (Death, Hospitalization, Other)
  Sender: FDA-Public Use
  Company Number: 2004018774

PATIENT
  Age: 77 Year
  Sex: Female
  Weight: 60.3284 kg

DRUGS (10)
  1. LIPITOR [Suspect]
     Indication: HYPERLIPIDAEMIA
     Dosage: 80 MG DAILY, ORAL
     Route: 048
     Dates: start: 20001201, end: 20040106
  2. EZETIMIBE (EZETIMIBE) [Suspect]
     Indication: LOW DENSITY LIPOPROTEIN INCREASED
     Dosage: 10 MG DAILY
     Dates: start: 20030829, end: 20040106
  3. LISINOPRIL [Concomitant]
  4. LEVOTHYROXINE SODIUM (LEVOTHYROXINE) [Concomitant]
  5. OXYBUTYNIN [Concomitant]
  6. ACETYLSALICYLIC ACID SRT [Concomitant]
  7. AMITRIPTYLINE HCL [Concomitant]
  8. NITROFURANTOIN [Concomitant]
  9. CALCIUM CARBONATE (CALCIUM CARBONATE) [Concomitant]
  10. METOPROLOL SUCCINATE [Concomitant]

REACTIONS (3)
  - HEPATIC FAILURE [None]
  - HEPATIC NECROSIS [None]
  - LOW DENSITY LIPOPROTEIN INCREASED [None]
